FAERS Safety Report 13398297 (Version 1)
Quarter: 2017Q2

REPORT INFORMATION
  Report Type: Spontaneous
  Country: FR (occurrence: FR)
  Receive Date: 20170403
  Receipt Date: 20170403
  Transmission Date: 20170830
  Serious: Yes (Other)
  Sender: FDA-Public Use
  Company Number: FR-009507513-1703FRA012550

PATIENT
  Age: 67 Year
  Sex: Female

DRUGS (6)
  1. KEYTRUDA [Suspect]
     Active Substance: PEMBROLIZUMAB
     Dosage: 2 MG/KG PER CYCLE
     Route: 042
     Dates: start: 20160915
  2. KEYTRUDA [Suspect]
     Active Substance: PEMBROLIZUMAB
     Dosage: 2 MG/KG PER CYCLE
     Route: 042
     Dates: start: 20160804
  3. KEYTRUDA [Suspect]
     Active Substance: PEMBROLIZUMAB
     Dosage: 2 MG/KG PER CYCLE
     Route: 042
     Dates: start: 20160825
  4. KEYTRUDA [Suspect]
     Active Substance: PEMBROLIZUMAB
     Indication: METASTATIC MALIGNANT MELANOMA
     Dosage: 2 MG/KG PER CYCLE
     Route: 042
     Dates: start: 20160623
  5. KEYTRUDA [Suspect]
     Active Substance: PEMBROLIZUMAB
     Dosage: 2 MG/KG PER CYCLE
     Route: 042
     Dates: start: 20160715
  6. KEYTRUDA [Suspect]
     Active Substance: PEMBROLIZUMAB
     Dosage: 2 MG/KG PER CYCLE
     Route: 042
     Dates: start: 20161006

REACTIONS (1)
  - Keratitis [Recovering/Resolving]

NARRATIVE: CASE EVENT DATE: 201608
